FAERS Safety Report 18414313 (Version 1)
Quarter: 2020Q4

REPORT INFORMATION
  Report Type: Spontaneous
  Country: US (occurrence: US)
  Receive Date: 20201021
  Receipt Date: 20201021
  Transmission Date: 20210114
  Serious: Yes (Hospitalization)
  Sender: FDA-Public Use
  Company Number: None

PATIENT
  Age: 76 Year
  Sex: Male

DRUGS (12)
  1. AMLPODIPINE [Concomitant]
  2. QVAR REDHIAL ER [Concomitant]
  3. INLYTA [Suspect]
     Active Substance: AXITINIB
     Indication: RENAL CANCER
     Route: 048
     Dates: start: 20200123
  4. LEVOTHYROXIN [Concomitant]
     Active Substance: LEVOTHYROXINE
  5. FEROSUL [Concomitant]
     Active Substance: FERROUS SULFATE
  6. TAMSULOSIN [Concomitant]
     Active Substance: TAMSULOSIN
  7. ZAFRILUKAST [Concomitant]
  8. BRIMONIDINE [Concomitant]
     Active Substance: BRIMONIDINE TARTRATE
  9. DUREZOL [Concomitant]
     Active Substance: DIFLUPREDNATE
  10. LISINOPRIL AND HYDROCHLOROTHIAZIDE [Concomitant]
     Active Substance: HYDROCHLOROTHIAZIDE\LISINOPRIL
  11. XARELTO [Concomitant]
     Active Substance: RIVAROXABAN
  12. FUROSEMIDE. [Concomitant]
     Active Substance: FUROSEMIDE

REACTIONS (5)
  - Nausea [None]
  - Acute oesophageal mucosal lesion [None]
  - Haematemesis [None]
  - Therapy interrupted [None]
  - Gastric mucosal lesion [None]

NARRATIVE: CASE EVENT DATE: 20200908
